FAERS Safety Report 16023418 (Version 1)
Quarter: 2019Q1

REPORT INFORMATION
  Report Type: Spontaneous
  Country: SI (occurrence: SI)
  Receive Date: 20190301
  Receipt Date: 20190301
  Transmission Date: 20190418
  Serious: Yes (Hospitalization, Other)
  Sender: FDA-Public Use
  Company Number: SI-JNJFOC-20190239934

PATIENT
  Age: 79 Year
  Sex: Female

DRUGS (10)
  1. ASPIRIN PLUS C [Suspect]
     Active Substance: ASCORBIC ACID\ASPIRIN
     Indication: PRODUCT USED FOR UNKNOWN INDICATION
     Route: 065
  2. PERINDOPRIL INDAPAMID [Concomitant]
     Active Substance: INDAPAMIDE\PERINDOPRIL
     Dosage: 1 DF, OM
     Route: 065
  3. AMLODIPINE [Concomitant]
     Active Substance: AMLODIPINE BESYLATE
     Route: 065
  4. SALMETEROL/FLUTICASONE CASCAN [Concomitant]
     Active Substance: FLUTICASONE PROPIONATE\SALMETEROL XINAFOATE
     Route: 065
  5. XARELTO [Suspect]
     Active Substance: RIVAROXABAN
     Indication: ATRIAL FIBRILLATION
     Route: 048
     Dates: start: 201503
  6. BISOPROLOL [Concomitant]
     Active Substance: BISOPROLOL
     Dosage: EVERY MORNING
     Route: 065
  7. GLIQUIDONE [Concomitant]
     Active Substance: GLIQUIDONE
     Dosage: OM
     Route: 065
  8. ZOLPIDEM [Concomitant]
     Active Substance: ZOLPIDEM\ZOLPIDEM TARTRATE
     Route: 065
  9. ESOMEPRAZOLE. [Concomitant]
     Active Substance: ESOMEPRAZOLE MAGNESIUM
     Dosage: OM
     Route: 065
  10. SALBUTAMOL [Concomitant]
     Active Substance: ALBUTEROL
     Route: 065

REACTIONS (11)
  - Rectal haemorrhage [Unknown]
  - Haemorrhoids [Unknown]
  - Pallor [Unknown]
  - Haematochezia [Unknown]
  - Abdominal distension [Unknown]
  - Haemorrhoids thrombosed [Unknown]
  - Diverticulum intestinal [Unknown]
  - Asthenia [Unknown]
  - Skin turgor decreased [Unknown]
  - Hepatic steatosis [Unknown]
  - Nasopharyngitis [Unknown]
